FAERS Safety Report 13776933 (Version 1)
Quarter: 2017Q3

REPORT INFORMATION
  Report Type: Spontaneous
  Country: GB (occurrence: GB)
  Receive Date: 20170721
  Receipt Date: 20170721
  Transmission Date: 20171127
  Serious: Yes (Hospitalization, Other)
  Sender: FDA-Public Use
  Company Number: GB-009507513-1707GBR005838

PATIENT
  Sex: Male

DRUGS (1)
  1. NANDROLONE DECANOATE. [Suspect]
     Active Substance: NANDROLONE DECANOATE
     Indication: BLOOD TESTOSTERONE DECREASED
     Dosage: 50MG/ML; 1 IN 4 WEEKS
     Route: 065

REACTIONS (6)
  - Drug dose omission [Unknown]
  - Product availability issue [Unknown]
  - Off label use [Unknown]
  - Blood testosterone decreased [Not Recovered/Not Resolved]
  - Feeling abnormal [Not Recovered/Not Resolved]
  - Hospitalisation [Unknown]
